FAERS Safety Report 13526019 (Version 3)
Quarter: 2017Q4

REPORT INFORMATION
  Report Type: Report from Study
  Country: US (occurrence: US)
  Receive Date: 20170509
  Receipt Date: 20171106
  Transmission Date: 20180320
  Serious: No
  Sender: FDA-Public Use
  Company Number: PHEH2017US013749

PATIENT
  Sex: Female

DRUGS (1)
  1. GILENYA [Suspect]
     Active Substance: FINGOLIMOD HYDROCHLORIDE
     Indication: MULTIPLE SCLEROSIS
     Dosage: 0.5 MG, QD
     Route: 048
     Dates: start: 20160218

REACTIONS (6)
  - Stress [Unknown]
  - Gait disturbance [Unknown]
  - Vitreous floaters [Unknown]
  - Irritability [Unknown]
  - Memory impairment [Unknown]
  - Fatigue [Unknown]
